FAERS Safety Report 23185729 (Version 2)
Quarter: 2024Q1

REPORT INFORMATION
  Report Type: Report from Study
  Country: DK (occurrence: DK)
  Receive Date: 20231115
  Receipt Date: 20240103
  Transmission Date: 20240410
  Serious: Yes (Hospitalization)
  Sender: FDA-Public Use
  Company Number: DK-ALXN-A202313582

PATIENT
  Age: 52 Year
  Sex: Female

DRUGS (4)
  1. ULTOMIRIS [Suspect]
     Active Substance: RAVULIZUMAB-CWVZ
     Indication: Atypical haemolytic uraemic syndrome
     Dosage: 3000 MILLIGRAM
     Route: 042
     Dates: start: 20210712
  2. ULTOMIRIS [Suspect]
     Active Substance: RAVULIZUMAB-CWVZ
     Dosage: 1100 MILLIGRAM, EVERY 8 WEEK
     Route: 065
  3. SERTRALIN                          /01011401/ [Concomitant]
     Indication: Anxiety
     Dosage: 0.5 MG, QD
     Route: 048
     Dates: start: 20220118
  4. SERTRALIN                          /01011401/ [Concomitant]
     Dosage: 25 MILLIGRAM, QD
     Route: 065

REACTIONS (2)
  - Blood creatinine increased [Recovered/Resolved]
  - Arthralgia [Recovered/Resolved]

NARRATIVE: CASE EVENT DATE: 20230210
